FAERS Safety Report 4752961-9 (Version None)
Quarter: 2005Q3

REPORT INFORMATION
  Report Type: 
  Country: None (occurrence: None)
  Receive Date: 20050825
  Receipt Date: 20050808
  Transmission Date: 20060218
  Serious: Yes (Disabling)
  Sender: FDA-Public Use
  Company Number: 2005-0008603

PATIENT
  Sex: Male

DRUGS (12)
  1. TRUVADA [Suspect]
     Indication: HIV INFECTION
     Dosage: 1 DOSAGE FORMS, 1 IN 1 D, ORAL
     Route: 048
     Dates: start: 20050627
  2. VIAGRA [Suspect]
     Dosage: 25 MG, AS REQUIRED, ORAL
     Route: 048
  3. VIRACEPT [Concomitant]
  4. BACTRIM [Concomitant]
  5. DIFLUCAN [Concomitant]
  6. OXANDRIN [Concomitant]
  7. EFFEXOR XR [Concomitant]
  8. ANDROGEL PUMP (TESTOSTERONE) [Concomitant]
  9. LIPITOR [Concomitant]
  10. VALTREX [Concomitant]
  11. ENSURE PLUS (ENSURE PLUS) [Concomitant]
  12. MARINOL [Concomitant]

REACTIONS (3)
  - BLINDNESS TRANSIENT [None]
  - BLINDNESS UNILATERAL [None]
  - TINNITUS [None]
